FAERS Safety Report 18042160 (Version 1)
Quarter: 2020Q3

REPORT INFORMATION
  Report Type: Other
  Country: JP (occurrence: JP)
  Receive Date: 20200720
  Receipt Date: 20200720
  Transmission Date: 20201103
  Serious: Yes (Hospitalization)
  Sender: FDA-Public Use
  Company Number: JP-ORCHID HEALTHCARE-2087501

PATIENT
  Age: 64 Year
  Sex: Female

DRUGS (5)
  1. PEGINTERFERON ALPHA 2B [Suspect]
     Active Substance: PEGINTERFERON ALFA-2B
     Route: 065
  2. CANDESARTAN CILEXETIL. [Suspect]
     Active Substance: CANDESARTAN CILEXETIL
     Route: 065
  3. NICARDIPINE [Suspect]
     Active Substance: NICARDIPINE
     Route: 065
  4. AMLODIPINE BESYLATE. [Suspect]
     Active Substance: AMLODIPINE BESYLATE
     Indication: HYPERTENSION
     Route: 065
  5. ATENOLOL. [Suspect]
     Active Substance: ATENOLOL
     Route: 065

REACTIONS (1)
  - Fixed eruption [Recovered/Resolved]
